FAERS Safety Report 8012903-X (Version None)
Quarter: 2011Q4

REPORT INFORMATION
  Report Type: 
  Country: None (occurrence: None)
  Receive Date: 20111223
  Receipt Date: 20111223
  Transmission Date: 20120403
  Serious: Yes (Hospitalization)
  Sender: FDA-Public Use
  Company Number: None

PATIENT
  Age: 43 Year
  Sex: Male
  Weight: 137.3 kg

DRUGS (1)
  1. MORPHINE [Suspect]
     Indication: PAIN
     Dosage: 2 TAB AM PO
     Route: 048
     Dates: start: 20110614, end: 20110622

REACTIONS (9)
  - RENAL FAILURE ACUTE [None]
  - INCORRECT DOSE ADMINISTERED [None]
  - BLOOD CREATINE PHOSPHOKINASE INCREASED [None]
  - MENTAL STATUS CHANGES [None]
  - HYPERKALAEMIA [None]
  - LETHARGY [None]
  - DECREASED APPETITE [None]
  - ACCIDENTAL OVERDOSE [None]
  - CHROMATURIA [None]
